FAERS Safety Report 11142092 (Version 1)
Quarter: 2015Q2

REPORT INFORMATION
  Report Type: Spontaneous
  Country: US (occurrence: None)
  Receive Date: 20150526
  Receipt Date: 20150526
  Transmission Date: 20150821
  Serious: Yes (Other)
  Sender: FDA-Public Use
  Company Number: None

PATIENT
  Age: 68 Year
  Sex: Male
  Weight: 112.04 kg

DRUGS (9)
  1. TESTOSTERINE [Concomitant]
  2. MULTI VITMIN [Concomitant]
  3. MAGNESIUM [Concomitant]
     Active Substance: MAGNESIUM
  4. NEURO-STIMULATOR IMPLANTS [Concomitant]
  5. LISINOPRIL. [Concomitant]
     Active Substance: LISINOPRIL
  6. IBUPROPHEN [Concomitant]
     Active Substance: IBUPROFEN
  7. CPAP [Concomitant]
     Active Substance: DEVICE
  8. ADVAIR HFA [Suspect]
     Active Substance: FLUTICASONE PROPIONATE\SALMETEROL XINAFOATE
     Indication: WHEEZING
     Dosage: 1 PUFF
     Route: 055
     Dates: start: 20150504, end: 20150521
  9. MYSOLINE [Concomitant]
     Active Substance: PRIMIDONE

REACTIONS (6)
  - Headache [None]
  - Musculoskeletal pain [None]
  - Muscle spasms [None]
  - Myalgia [None]
  - Arthralgia [None]
  - Muscular weakness [None]

NARRATIVE: CASE EVENT DATE: 20150521
